FAERS Safety Report 12657814 (Version 3)
Quarter: 2016Q3

REPORT INFORMATION
  Report Type: Spontaneous
  Country: US (occurrence: US)
  Receive Date: 20160817
  Receipt Date: 20160927
  Transmission Date: 20161109
  Serious: Yes (Other)
  Sender: FDA-Public Use
  Company Number: US-AMGEN-USASP2016037321

PATIENT
  Age: 88 Year
  Sex: Female
  Weight: 44.44 kg

DRUGS (3)
  1. PROLIA [Suspect]
     Active Substance: DENOSUMAB
     Indication: OSTEOPOROSIS
  2. PROLIA [Suspect]
     Active Substance: DENOSUMAB
     Indication: ARTHRITIS
     Dosage: 60 MG, Q6MO
     Route: 058
     Dates: start: 20150528, end: 20160516
  3. CALCIUM + VITAMIN D [Concomitant]
     Active Substance: CALCIUM\VITAMIN D
     Indication: OSTEOPOROSIS
     Dosage: ONE TABLET BID FROM YEARS

REACTIONS (28)
  - Gingival swelling [Unknown]
  - Tooth extraction [Unknown]
  - Lip swelling [Not Recovered/Not Resolved]
  - Hypophagia [Unknown]
  - Body height decreased [Unknown]
  - Toothache [Unknown]
  - Insomnia [Not Recovered/Not Resolved]
  - Glossodynia [Not Recovered/Not Resolved]
  - Oral disorder [Unknown]
  - Tooth loss [Unknown]
  - Mastication disorder [Unknown]
  - Unevaluable event [Not Recovered/Not Resolved]
  - Tongue disorder [Not Recovered/Not Resolved]
  - Fatigue [Not Recovered/Not Resolved]
  - Frustration tolerance decreased [Unknown]
  - Gingival pain [Not Recovered/Not Resolved]
  - Hypoaesthesia [Recovered/Resolved]
  - Neuralgia [Not Recovered/Not Resolved]
  - Tooth fracture [Not Recovered/Not Resolved]
  - Weight decreased [Not Recovered/Not Resolved]
  - Tooth disorder [Unknown]
  - Oral pain [Unknown]
  - Asthenia [Unknown]
  - Fear [Not Recovered/Not Resolved]
  - Bone disorder [Not Recovered/Not Resolved]
  - Gait disturbance [Recovered/Resolved]
  - Nausea [Not Recovered/Not Resolved]
  - Arthritis [Not Recovered/Not Resolved]

NARRATIVE: CASE EVENT DATE: 2015
